FAERS Safety Report 10034568 (Version 1)
Quarter: 2014Q1

REPORT INFORMATION
  Report Type: Spontaneous
  Country: US (occurrence: None)
  Receive Date: 20140321
  Receipt Date: 20140321
  Transmission Date: 20141002
  Serious: Yes (Hospitalization)
  Sender: FDA-Public Use
  Company Number: SYM-2014-18748

PATIENT
  Sex: Female
  Weight: 47.17 kg

DRUGS (1)
  1. XENAZINE [Suspect]
     Indication: HUNTINGTON^S DISEASE
     Route: 048
     Dates: start: 2009, end: 20140309

REACTIONS (5)
  - Dysphagia [None]
  - Aspiration [None]
  - Weight decreased [None]
  - Pneumonia [None]
  - Bronchitis [None]
